FAERS Safety Report 11633230 (Version 1)
Quarter: 2015Q4

REPORT INFORMATION
  Report Type: Spontaneous
  Country: US (occurrence: None)
  Receive Date: 20151014
  Receipt Date: 20151014
  Transmission Date: 20160304
  Serious: Yes (Other)
  Sender: FDA-Public Use
  Company Number: None

PATIENT
  Age: 66 Year
  Sex: Female
  Weight: 48.54 kg

DRUGS (21)
  1. FLUZONE HIGH-DOSE [Suspect]
     Active Substance: INFLUENZA A VIRUS A/CALIFORNIA/7/2009 X-179A (H1N1) ANTIGEN (FORMALDEHYDE INACTIVATED)\INFLUENZA A VIRUS A/VICTORIA/210/2009 X-187 (H3N2) ANTIGEN (FORMALDEHYDE INACTIVATED)\INFLUENZA B VIRUS B/BRISBANE/60/2008 ANTIGEN (FORMALDEHYDE INACTIVATED)
     Dosage: HIGH DOSE?0.5ML
     Dates: start: 20151010
  2. BROVANA [Concomitant]
     Active Substance: ARFORMOTEROL TARTRATE
  3. DILTIAZEM [Concomitant]
     Active Substance: DILTIAZEM
  4. FOLATE [Concomitant]
     Active Substance: FOLATE SODIUM
  5. ALBUTEROL. [Concomitant]
     Active Substance: ALBUTEROL
  6. ESRADIOL [Concomitant]
  7. MONTELUKST [Concomitant]
  8. CALCIUM [Concomitant]
     Active Substance: CALCIUM
  9. SPIRIVA [Concomitant]
     Active Substance: TIOTROPIUM BROMIDE MONOHYDRATE
  10. BUDESONIDE. [Concomitant]
     Active Substance: BUDESONIDE
  11. VITAMIN E [Concomitant]
     Active Substance: .ALPHA.-TOCOPHEROL
  12. FLUTICASONE [Concomitant]
     Active Substance: FLUTICASONE\FLUTICASONE PROPIONATE
  13. KEVOTHYROXINE [Concomitant]
  14. PROAIR HFA [Concomitant]
     Active Substance: ALBUTEROL SULFATE
  15. IPRATROPIUM BR + ALBUTEROL [Concomitant]
  16. MULTIVITAMIN [Concomitant]
     Active Substance: VITAMINS
  17. VITAMIN B12 [Concomitant]
     Active Substance: CYANOCOBALAMIN
  18. VITAMIN D [Concomitant]
     Active Substance: CHOLECALCIFEROL
  19. ASPIRIN. [Concomitant]
     Active Substance: ASPIRIN
  20. LORAZEPAM. [Concomitant]
     Active Substance: LORAZEPAM
  21. PREDNISONE. [Concomitant]
     Active Substance: PREDNISONE

REACTIONS (3)
  - Discomfort [None]
  - Rash morbilliform [None]
  - Rash [None]

NARRATIVE: CASE EVENT DATE: 20151009
